FAERS Safety Report 23624095 (Version 2)
Quarter: 2024Q2

REPORT INFORMATION
  Report Type: Report from Study
  Country: AR (occurrence: AR)
  Receive Date: 20240312
  Receipt Date: 20240409
  Transmission Date: 20240716
  Serious: Yes (Other)
  Sender: FDA-Public Use
  Company Number: AR-AMGEN-ARGSL2024046103

PATIENT
  Age: 82 Year
  Sex: Male

DRUGS (1)
  1. VECTIBIX [Suspect]
     Active Substance: PANITUMUMAB
     Indication: Colorectal cancer
     Dosage: UNK, 15 DAYS
     Route: 065
     Dates: start: 20231204

REACTIONS (5)
  - Urinary retention [Recovering/Resolving]
  - Fluid retention [Recovering/Resolving]
  - Malaise [Recovering/Resolving]
  - Lymphadenopathy [Unknown]
  - Back pain [Unknown]

NARRATIVE: CASE EVENT DATE: 20240301
